FAERS Safety Report 26011035 (Version 1)
Quarter: 2025Q4

REPORT INFORMATION
  Report Type: Spontaneous
  Country: US (occurrence: None)
  Receive Date: 20251107
  Receipt Date: 20251107
  Transmission Date: 20260118
  Serious: Yes (Death, Hospitalization)
  Sender: FDA-CTU
  Company Number: None

PATIENT
  Age: 49 Year
  Sex: Female
  Weight: 68 kg

DRUGS (8)
  1. CYCLOPHOSPHAMIDE [Suspect]
     Active Substance: CYCLOPHOSPHAMIDE
     Dates: start: 20251018
  2. CYTARABINE [Suspect]
     Active Substance: CYTARABINE
     Dates: start: 20251015
  3. DEXAMETHASONE [Suspect]
     Active Substance: DEXAMETHASONE
     Dates: start: 20251028
  4. DOXORUBICIN HYDROCHLORIDE [Suspect]
     Active Substance: DOXORUBICIN HYDROCHLORIDE
     Dates: start: 20251018
  5. MESNA [Suspect]
     Active Substance: MESNA
     Dates: start: 20251018
  6. METHOTREXATE [Suspect]
     Active Substance: METHOTREXATE
     Dates: start: 20251023
  7. PONATINIB [Suspect]
     Active Substance: PONATINIB
     Dates: start: 20251028
  8. VINCRISTINE SULFATE [Suspect]
     Active Substance: VINCRISTINE SULFATE
     Dates: start: 20251025

REACTIONS (9)
  - Supraventricular tachycardia [None]
  - Hypertension [None]
  - Pain [None]
  - Drug ineffective [None]
  - Nausea [None]
  - Sepsis [None]
  - Oesophagitis [None]
  - Compartment syndrome [None]
  - Cell death [None]

NARRATIVE: CASE EVENT DATE: 20251101
